FAERS Safety Report 9098961 (Version 1)
Quarter: 2013Q1

REPORT INFORMATION
  Report Type: Spontaneous
  Country: CO (occurrence: CO)
  Receive Date: 20130213
  Receipt Date: 20130213
  Transmission Date: 20140127
  Serious: Yes (Other)
  Sender: FDA-Public Use
  Company Number: CO-JNJFOC-20130203484

PATIENT
  Age: 84 Year
  Sex: Male

DRUGS (1)
  1. REMINYL [Suspect]
     Indication: AMNESIA
     Route: 048
     Dates: end: 20121102

REACTIONS (1)
  - Pancreatitis [Unknown]
